FAERS Safety Report 16702021 (Version 1)
Quarter: 2019Q3

REPORT INFORMATION
  Report Type: Spontaneous
  Country: US (occurrence: US)
  Receive Date: 20190814
  Receipt Date: 20190814
  Transmission Date: 20191004
  Serious: Yes (Hospitalization)
  Sender: FDA-Public Use
  Company Number: US-PFIZER INC-2019334156

PATIENT
  Age: 37 Year
  Sex: Female

DRUGS (5)
  1. VINCRISTINE SULFATE. [Suspect]
     Active Substance: VINCRISTINE SULFATE
     Indication: NON-HODGKIN^S LYMPHOMA
     Dosage: UNK, CYCLIC, (96-HOUR. CONTINUOUS INFUSION, (96-HOUR. CONTINUOUS INFUSION, 2,3,4 CYCLE))
     Route: 042
  2. ETOPOSIDE. [Suspect]
     Active Substance: ETOPOSIDE
     Indication: NON-HODGKIN^S LYMPHOMA
     Dosage: UNK, CYCLIC, (96-HOUR. CONTINUOUS INFUSION, (96-HOUR. CONTINUOUS INFUSION, 2,3,4 CYCLE))
     Route: 042
  3. CYCLOPHOSPHAMIDE. [Suspect]
     Active Substance: CYCLOPHOSPHAMIDE
     Indication: NON-HODGKIN^S LYMPHOMA
     Dosage: UNK, CYCLIC, (ON THE SIXTH DAY. R.O. RECEIVED A DOSE OF CYCLOPHOSPHAMIDE OVER 15 MINUTES, 2,3,4 CYC)
     Route: 042
  4. NORMAL SALINE [Concomitant]
     Active Substance: SODIUM CHLORIDE
     Indication: FLUID REPLACEMENT
     Dosage: UNK, (TWO-HOUR RAPID INFUSION)
     Route: 042
  5. DOXORUBICIN HCL [Suspect]
     Active Substance: DOXORUBICIN HYDROCHLORIDE
     Indication: NON-HODGKIN^S LYMPHOMA
     Dosage: UNK, CYCLIC, (96-HOUR. CONTINUOUS INFUSION, 2,3,4 CYCLE)
     Route: 042

REACTIONS (3)
  - Administration site extravasation [Recovered/Resolved]
  - Musculoskeletal pain [Recovered/Resolved]
  - Musculoskeletal chest pain [Recovered/Resolved]
